FAERS Safety Report 19182681 (Version 2)
Quarter: 2021Q2

REPORT INFORMATION
  Report Type: Spontaneous
  Country: US (occurrence: US)
  Receive Date: 20210426
  Receipt Date: 20210523
  Transmission Date: 20210717
  Serious: No
  Sender: FDA-Public Use
  Company Number: US-ASTRAZENECA-2021A288281

PATIENT
  Age: 28850 Day
  Sex: Male
  Weight: 91.2 kg

DRUGS (1)
  1. SYMBICORT [Suspect]
     Active Substance: BUDESONIDE\FORMOTEROL FUMARATE DIHYDRATE
     Indication: ASTHMA
     Dosage: 160/4.5MCG 2 PUFFS TWO TIMES A DAY
     Route: 055

REACTIONS (8)
  - Product use issue [Unknown]
  - Dyspnoea [Unknown]
  - Product storage error [Unknown]
  - Cough [Unknown]
  - Drug delivery system issue [Unknown]
  - Wrong technique in device usage process [Unknown]
  - Rhinorrhoea [Unknown]
  - Product dose omission issue [Unknown]

NARRATIVE: CASE EVENT DATE: 20210405
